FAERS Safety Report 7340225-9 (Version None)
Quarter: 2011Q1

REPORT INFORMATION
  Report Type: 
  Country: None (occurrence: None)
  Receive Date: 20110228
  Receipt Date: 20110216
  Transmission Date: 20110831
  Serious: Yes (Hospitalization)
  Sender: FDA-Public Use
  Company Number: 7034493

PATIENT
  Age: 87 Year
  Sex: Female

DRUGS (4)
  1. LASILIX (FUROSEMIDE) (FUROSEMIDE) [Concomitant]
  2. KARDEGIC (ACETYLSALICYLATE LYSINE) (ACETYLSALICYLATE LYSINE) [Concomitant]
  3. ATACAND [Concomitant]
  4. LEVOTHYROX 25 (LEVOTHYROXINE SODIUM) (25 MICROGRAM, TABLET) (LEVOTHYRO [Suspect]
     Indication: HYPOTHYROIDISM
     Dosage: ORAL
     Route: 048

REACTIONS (1)
  - ASTHMA [None]
